FAERS Safety Report 21697878 (Version 1)
Quarter: 2022Q4

REPORT INFORMATION
  Report Type: Spontaneous
  Country: GB (occurrence: GB)
  Receive Date: 20221208
  Receipt Date: 20221208
  Transmission Date: 20230113
  Serious: No
  Sender: FDA-Public Use
  Company Number: None

PATIENT
  Sex: Male

DRUGS (13)
  1. TOLVAPTAN [Suspect]
     Active Substance: TOLVAPTAN
     Indication: Congenital cystic kidney disease
     Dosage: 15 MILLIGRAM, TABLET (UNCOATED)
     Route: 048
     Dates: start: 20210519
  2. TOLVAPTAN [Suspect]
     Active Substance: TOLVAPTAN
     Dosage: 45 MILLIGRAM, TABLET (UNCOATED)
     Route: 048
     Dates: start: 20210519
  3. TOLVAPTAN [Suspect]
     Active Substance: TOLVAPTAN
     Dosage: 30 MILLIGRAM, TABLET (UNCOATED)
     Route: 048
     Dates: start: 20210616
  4. TOLVAPTAN [Suspect]
     Active Substance: TOLVAPTAN
     Dosage: 60 MILLIGRAM, TABLET (UNCOATED)
     Route: 048
     Dates: start: 20210616
  5. TOLVAPTAN [Suspect]
     Active Substance: TOLVAPTAN
     Dosage: 30 MILLIGRAM, TABLET (UNCOATED)
     Route: 048
     Dates: start: 20210714
  6. TOLVAPTAN [Suspect]
     Active Substance: TOLVAPTAN
     Dosage: 90 MILLIGRAM, TABLET (UNCOATED)
     Route: 048
     Dates: start: 20210714
  7. ALLOPURINOL [Concomitant]
     Active Substance: ALLOPURINOL
     Indication: Product used for unknown indication
     Dosage: 200 MILLIGRAM, QD (1 DAY)
     Route: 048
     Dates: start: 2019
  8. ATORVASTATIN [Concomitant]
     Active Substance: ATORVASTATIN
     Indication: Cardiovascular disorder
     Dosage: 40 MILLIGRAM, QD (1 DAY)
     Route: 048
     Dates: start: 20190629
  9. ATORVASTATIN [Concomitant]
     Active Substance: ATORVASTATIN
     Indication: Blood cholesterol increased
     Dosage: UNK
     Route: 065
  10. BISOPROLOL [Concomitant]
     Active Substance: BISOPROLOL
     Indication: Product used for unknown indication
     Dosage: 5 MILLIGRAM, QD (1 DAY)
     Route: 048
     Dates: start: 2020
  11. COLCHICINE [Concomitant]
     Active Substance: COLCHICINE
     Indication: Product used for unknown indication
     Dosage: 500 MICROGRAM ( AS NEEDED)
     Route: 048
     Dates: start: 20171019
  12. IRBESARTAN [Concomitant]
     Active Substance: IRBESARTAN
     Indication: Product used for unknown indication
     Dosage: 300 MILLIGRAM, QD (1 DAY)
     Route: 048
     Dates: start: 2014
  13. LACIDIPINE [Concomitant]
     Active Substance: LACIDIPINE
     Indication: Product used for unknown indication
     Dosage: 6 MILLIGRAM, QD (1 DAY)
     Route: 048
     Dates: start: 2019

REACTIONS (3)
  - Nocturia [Not Recovered/Not Resolved]
  - Polyuria [Not Recovered/Not Resolved]
  - Peripheral swelling [Recovered/Resolved]

NARRATIVE: CASE EVENT DATE: 20210601
